FAERS Safety Report 24084736 (Version 1)
Quarter: 2024Q3

REPORT INFORMATION
  Report Type: Spontaneous
  Country: GB (occurrence: GB)
  Receive Date: 20240712
  Receipt Date: 20240712
  Transmission Date: 20241017
  Serious: Yes (Other)
  Sender: ORGANON
  Company Number: GB-MHRA-TPP11773167C7181661YC1719389954605

PATIENT
  Age: 64 Year
  Sex: Female
  Weight: 77 kg

DRUGS (7)
  1. EZETIMIBE [Suspect]
     Active Substance: EZETIMIBE
     Dosage: 10 MILLIGRAM, QD
     Dates: start: 20240612
  2. BEMPEDOIC ACID [Suspect]
     Active Substance: BEMPEDOIC ACID
     Dosage: 180 MILLIGRAM, QD
     Dates: start: 20240612
  3. BISACODYL [Concomitant]
     Active Substance: BISACODYL
     Dosage: INSERT AS REQUIRED
     Dates: start: 20230308
  4. SENNA LEAF [Concomitant]
     Active Substance: SENNA LEAF
     Dosage: TAKE 1 OR 2 AT NIGHT
     Dates: start: 20230308
  5. CROMOLYN SODIUM [Concomitant]
     Active Substance: CROMOLYN SODIUM
     Dosage: ONE DROP 4 TIMES/DAY
     Dates: start: 20230308
  6. ROSUVASTATIN [Concomitant]
     Active Substance: ROSUVASTATIN
     Dosage: TAKE ONE ONCE WEEKLY
     Dates: start: 20240314, end: 20240612
  7. OPTILUBE [Concomitant]
     Dosage: UNK (USE AS DIRECTED )
     Dates: start: 20230308

REACTIONS (2)
  - Urine output decreased [Recovered/Resolved]
  - Headache [Recovered/Resolved]
